FAERS Safety Report 16515383 (Version 1)
Quarter: 2019Q3

REPORT INFORMATION
  Report Type: Spontaneous
  Country: US (occurrence: US)
  Receive Date: 20190521
  Receipt Date: 20190521
  Transmission Date: 20191004
  Serious: Yes (Life-Threatening)
  Sender: FDA-Public Use
  Company Number: None

PATIENT

DRUGS (1)
  1. LOSARTAN 50MG TABLETS [Suspect]
     Active Substance: LOSARTAN
     Indication: HYPERTENSION
     Dosage: 1 PILL 2X AM/PM ORAL
     Route: 048
     Dates: start: 20190404, end: 20190404

REACTIONS (6)
  - Chills [None]
  - Feeling cold [None]
  - Tremor [None]
  - Vomiting projectile [None]
  - Body temperature abnormal [None]
  - Dyspnoea [None]

NARRATIVE: CASE EVENT DATE: 20190404
